FAERS Safety Report 19471802 (Version 1)
Quarter: 2021Q2

REPORT INFORMATION
  Report Type: Other
  Country: IT (occurrence: IT)
  Receive Date: 20210628
  Receipt Date: 20210628
  Transmission Date: 20210717
  Serious: Yes (Death, Hospitalization, Other)
  Sender: FDA-Public Use
  Company Number: IT-CELLTRION INC.-2021IT008580

PATIENT

DRUGS (3)
  1. CEFTAZIDIME PENTAHYDRATE [Suspect]
     Active Substance: CEFTAZIDIME
     Indication: PRODUCT USED FOR UNKNOWN INDICATION
     Route: 065
  2. AVIBACTAM SODIUM. [Suspect]
     Active Substance: AVIBACTAM SODIUM
     Indication: PRODUCT USED FOR UNKNOWN INDICATION
     Route: 065
  3. RITUXIMAB (UNKNOWN) [Suspect]
     Active Substance: RITUXIMAB
     Indication: PRODUCT USED FOR UNKNOWN INDICATION
     Route: 065

REACTIONS (6)
  - Pyrexia [Unknown]
  - Pneumonia [Recovered/Resolved]
  - Neutropenia [Not Recovered/Not Resolved]
  - Ecthyma [Unknown]
  - Renal impairment [Fatal]
  - Aplasia [Not Recovered/Not Resolved]

NARRATIVE: CASE EVENT DATE: 2020
